FAERS Safety Report 9867421 (Version 1)
Quarter: 2014Q1

REPORT INFORMATION
  Report Type: Report from Study
  Country: CA (occurrence: CA)
  Receive Date: 20140204
  Receipt Date: 20140204
  Transmission Date: 20141002
  Serious: Yes (Other)
  Sender: FDA-Public Use
  Company Number: CA-JNJFOC-20140118837

PATIENT
  Age: 42 Year
  Sex: Female
  Weight: 46.2 kg

DRUGS (1)
  1. REMICADE [Suspect]
     Indication: CROHN^S DISEASE
     Route: 042
     Dates: start: 1998

REACTIONS (2)
  - Loss of consciousness [Unknown]
  - Hypotension [Unknown]
